FAERS Safety Report 8965649 (Version 1)
Quarter: 2012Q4

REPORT INFORMATION
  Report Type: Spontaneous
  Country: US (occurrence: None)
  Receive Date: 20121212
  Receipt Date: 20121212
  Transmission Date: 20130627
  Serious: Yes (Hospitalization)
  Sender: FDA-Public Use
  Company Number: None

PATIENT
  Age: 61 Year
  Sex: Male
  Weight: 110.5 kg

DRUGS (2)
  1. CITALOPRAM [Suspect]
     Dosage: 40 MG EVERY DAY PO
     Route: 048
     Dates: start: 20110713, end: 20110722
  2. QUETIAPINE [Suspect]
     Dosage: 37.5 MG AM PO
     Route: 048
     Dates: start: 20110618, end: 20110724

REACTIONS (1)
  - Convulsion [None]
